FAERS Safety Report 7755325-9 (Version None)
Quarter: 2011Q3

REPORT INFORMATION
  Report Type: 
  Country: None (occurrence: None)
  Receive Date: 20110913
  Receipt Date: 20110906
  Transmission Date: 20111222
  Serious: Yes (Other)
  Sender: FDA-Public Use
  Company Number: DSA_47560_2011

PATIENT
  Sex: Male
  Weight: 127.0072 kg

DRUGS (7)
  1. GLIPIZIDE [Concomitant]
  2. METFORMIN HCL [Concomitant]
  3. SIMVASTATIN [Concomitant]
  4. ZOLOFT [Concomitant]
  5. GABAPENTIN [Concomitant]
  6. XENAZINE [Suspect]
     Indication: TARDIVE DYSKINESIA
     Dosage: (12.5 MG TID ORAL)
     Route: 048
     Dates: start: 20110701, end: 20110901
  7. LIBENZAPRIL [Concomitant]

REACTIONS (3)
  - DISTURBANCE IN ATTENTION [None]
  - TARDIVE DYSKINESIA [None]
  - AMNESIA [None]
